FAERS Safety Report 9297749 (Version 2)
Quarter: 2013Q3

REPORT INFORMATION
  Report Type: Report from Study
  Country: AU (occurrence: AU)
  Receive Date: 20130520
  Receipt Date: 20130807
  Transmission Date: 20140515
  Serious: Yes (Other)
  Sender: FDA-Public Use
  Company Number: PHHY2013AU049264

PATIENT
  Age: 55 Year
  Sex: Female

DRUGS (7)
  1. ACLASTA [Suspect]
     Indication: OSTEOPOROSIS
     Dosage: 5 MG
     Route: 042
     Dates: start: 20110420
  2. ACLASTA [Suspect]
     Dosage: 5 MG
     Route: 042
     Dates: start: 20120523
  3. LUVOX [Concomitant]
     Indication: DEPRESSION
     Dosage: 50 MG
     Route: 048
  4. CRESTOR [Concomitant]
     Indication: BLOOD CHOLESTEROL INCREASED
     Dosage: 5 MG
     Route: 048
  5. NEXIUM//ESOMEPRAZOLE MAGNESIUM [Concomitant]
     Indication: GASTROOESOPHAGEAL REFLUX DISEASE
     Route: 048
  6. NEURONTIN [Concomitant]
     Indication: PAIN
     Dosage: 1 DF, TID
     Route: 048
  7. IMDUR [Concomitant]
     Indication: PAIN
     Dosage: 5 MG
     Route: 048

REACTIONS (1)
  - Renal cyst [Not Recovered/Not Resolved]
